FAERS Safety Report 18688181 (Version 7)
Quarter: 2024Q2

REPORT INFORMATION
  Report Type: Report from Study
  Country: DE (occurrence: DE)
  Receive Date: 20201231
  Receipt Date: 20240401
  Transmission Date: 20240716
  Serious: Yes (Other)
  Sender: FDA-Public Use
  Company Number: DE-PFM-2020-21728

PATIENT

DRUGS (6)
  1. NERATINIB [Suspect]
     Active Substance: NERATINIB
     Indication: Breast cancer
     Dosage: 160 MG/DAY
     Route: 048
     Dates: start: 20201010
  2. NERATINIB [Suspect]
     Active Substance: NERATINIB
     Dosage: 240 MG/DAY
     Route: 048
     Dates: start: 20201010
  3. NERATINIB [Suspect]
     Active Substance: NERATINIB
     Dosage: 450 MG/DAY
     Route: 048
     Dates: end: 20211006
  4. ZOLEDRONIC ACID [Concomitant]
     Active Substance: ZOLEDRONIC ACID
     Indication: Prophylaxis
     Dosage: 4 MG, EVERY 6 MONTHS
     Route: 042
     Dates: start: 20191017
  5. LETROZOLE [Concomitant]
     Active Substance: LETROZOLE
     Indication: Breast cancer
     Dosage: UNK
     Route: 065
     Dates: start: 201910, end: 202202
  6. TAMOXIFEN [Concomitant]
     Active Substance: TAMOXIFEN
     Indication: Breast cancer
     Dosage: UNK
     Route: 065
     Dates: start: 202202

REACTIONS (5)
  - Polyneuropathy [Not Recovered/Not Resolved]
  - Condition aggravated [Not Recovered/Not Resolved]
  - Diarrhoea [Recovered/Resolved]
  - Prescribed underdose [Unknown]
  - Off label use [Unknown]

NARRATIVE: CASE EVENT DATE: 20201010
